FAERS Safety Report 8923592 (Version 2)
Quarter: 2013Q3

REPORT INFORMATION
  Report Type: Spontaneous
  Country: GB (occurrence: GB)
  Receive Date: 20121123
  Receipt Date: 20130930
  Transmission Date: 20140515
  Serious: Yes (Life-Threatening)
  Sender: FDA-Public Use
  Company Number: GB-009507513-1211GBR006865

PATIENT
  Age: 85 Year
  Sex: Male

DRUGS (6)
  1. ONCOTICE [Suspect]
     Indication: BLADDER CANCER
     Dosage: 12.5 MG, UNK
     Route: 043
     Dates: start: 20121017, end: 20121017
  2. ONCOTICE [Suspect]
     Dosage: 12.5 MG, UNK
     Route: 043
     Dates: start: 20121023, end: 20121023
  3. SIMVASTATIN [Concomitant]
     Dosage: 40 MG, UNK
     Route: 048
  4. AMLODIPINE [Concomitant]
     Dosage: 5 MG, UNK
     Route: 048
  5. ASPIRIN [Concomitant]
     Dosage: 150 MG, UNK
     Route: 048
  6. BISOPROLOL [Concomitant]
     Dosage: 2.5 MG, UNK
     Route: 048

REACTIONS (1)
  - Swelling face [Recovered/Resolved]
